FAERS Safety Report 7775128-9 (Version None)
Quarter: 2011Q3

REPORT INFORMATION
  Report Type: 
  Country: None (occurrence: None)
  Receive Date: 20110923
  Receipt Date: 20110914
  Transmission Date: 20111222
  Serious: Yes (Hospitalization)
  Sender: FDA-Public Use
  Company Number: US-JNJFOC-20110412291

PATIENT
  Sex: Male
  Weight: 12.7 kg

DRUGS (10)
  1. BACTRIM [Concomitant]
  2. ACETAMINOPHEN [Concomitant]
  3. FERROUS SULFATE TAB [Concomitant]
  4. HYDROCODONE [Concomitant]
  5. KEFLEX [Concomitant]
  6. REMICADE [Suspect]
     Route: 042
     Dates: start: 20110301
  7. REMICADE [Suspect]
     Indication: INFLAMMATORY BOWEL DISEASE
     Route: 042
     Dates: start: 20091111, end: 20101122
  8. MORPHINE [Concomitant]
  9. PROBIOTICS [Concomitant]
  10. PREDNISONE [Concomitant]

REACTIONS (1)
  - INFLAMMATORY BOWEL DISEASE [None]
